FAERS Safety Report 12697046 (Version 2)
Quarter: 2016Q3

REPORT INFORMATION
  Report Type: Spontaneous
  Country: US (occurrence: US)
  Receive Date: 20160830
  Receipt Date: 20160920
  Transmission Date: 20161109
  Serious: No
  Sender: FDA-Public Use
  Company Number: US-ASTRAZENECA-2016SE89030

PATIENT
  Sex: Male
  Weight: 90.7 kg

DRUGS (3)
  1. PULMICORT FLEXHALER [Suspect]
     Active Substance: BUDESONIDE
     Indication: ASTHMA
     Dosage: 180 MCG, 1 PUFF DAILY
     Route: 055
  2. VENTOLIN [Concomitant]
     Active Substance: ALBUTEROL SULFATE
     Indication: PROPHYLAXIS
     Dosage: STARTED OVER 20 YEARS AGO, ZERO TO 1 PUFF EVERY DAY AS NEEDED
     Route: 055
  3. PRILOSEC OTC [Suspect]
     Active Substance: OMEPRAZOLE MAGNESIUM
     Indication: DYSPEPSIA
     Dosage: GENERIC
     Route: 048

REACTIONS (6)
  - Asthma [Unknown]
  - Product quality issue [Unknown]
  - Drug ineffective [Unknown]
  - Drug dose omission [Unknown]
  - Off label use [Unknown]
  - Intentional device misuse [Unknown]
